FAERS Safety Report 14020520 (Version 2)
Quarter: 2017Q4

REPORT INFORMATION
  Report Type: Spontaneous
  Country: US (occurrence: US)
  Receive Date: 20170928
  Receipt Date: 20171026
  Transmission Date: 20180321
  Serious: Yes (Other)
  Sender: FDA-Public Use
  Company Number: US-009507513-1709USA009377

PATIENT
  Age: 29 Year
  Sex: Female
  Weight: 90.7 kg

DRUGS (2)
  1. VITAMIN D [Concomitant]
     Active Substance: CHOLECALCIFEROL
     Dosage: UNK
  2. NEXPLANON [Suspect]
     Active Substance: ETONOGESTREL
     Indication: CONTRACEPTION
     Dosage: 1 DF, EVERY 3 YEARS LEFT ARM
     Route: 059
     Dates: start: 20141203

REACTIONS (8)
  - Vision blurred [Unknown]
  - Vaginal haemorrhage [Unknown]
  - Nuclear magnetic resonance imaging brain abnormal [Unknown]
  - Implant site hypoaesthesia [Unknown]
  - Menstruation normal [Unknown]
  - Visual impairment [Unknown]
  - Blindness unilateral [Unknown]
  - Implant site pruritus [Unknown]

NARRATIVE: CASE EVENT DATE: 20170908
